FAERS Safety Report 5903151-5 (Version None)
Quarter: 2008Q3

REPORT INFORMATION
  Report Type: 
  Country: None (occurrence: None)
  Receive Date: 20080926
  Receipt Date: 20080916
  Transmission Date: 20090109
  Serious: Yes (Hospitalization)
  Sender: FDA-Public Use
  Company Number: 2008-03256

PATIENT
  Age: 77 Year
  Sex: Female
  Weight: 56 kg

DRUGS (12)
  1. VELCADE [Suspect]
     Indication: MANTLE CELL LYMPHOMA
     Dates: start: 20080201, end: 20080804
  2. RITUXIMAB(RITUXIMAB) INJECTION, 375MG/M2 [Suspect]
     Indication: MANTLE CELL LYMPHOMA
     Dates: end: 20080804
  3. DOXORUBICIN HCL [Suspect]
     Indication: MANTLE CELL LYMPHOMA
     Dates: end: 20080804
  4. DEXAMETHASONE TAB [Suspect]
     Indication: MANTLE CELL LYMPHOMA
     Dates: end: 20080804
  5. CHLORAMBUCIL(CHLORAMBUCIL) ORAL DRUG UNSPECIFIED FORM [Suspect]
     Indication: MANTLE CELL LYMPHOMA
     Dosage: 12 MG
     Dates: end: 20080804
  6. GRANOCYTE [Concomitant]
  7. VALACYCLOVIR HCL [Concomitant]
  8. LEDERFOLIN (CALCIUM FOLINATE) [Concomitant]
  9. BACTRIM [Concomitant]
  10. PAROXETINE HYDROCHLORIDE [Concomitant]
  11. ZOLPIDEM TARTRATE [Concomitant]
  12. OMEPRAZOLE [Concomitant]

REACTIONS (14)
  - ASTHENIA [None]
  - CONSTIPATION [None]
  - CRANIAL NERVE DISORDER [None]
  - DIPLOPIA [None]
  - FACIAL PAIN [None]
  - HEADACHE [None]
  - HYPERACUSIS [None]
  - NEURALGIA [None]
  - NEUROTOXICITY [None]
  - OTITIS MEDIA [None]
  - POLYNEUROPATHY [None]
  - REFLEXES ABNORMAL [None]
  - SENSORY DISTURBANCE [None]
  - VISION BLURRED [None]
